FAERS Safety Report 24202125 (Version 2)
Quarter: 2024Q4

REPORT INFORMATION
  Report Type: Spontaneous
  Country: CA (occurrence: CA)
  Receive Date: 20240812
  Receipt Date: 20241108
  Transmission Date: 20250115
  Serious: Yes (Death, Other)
  Sender: BRISTOL-MYERS SQUIBB COMPANY
  Company Number: CA-BRISTOL-MYERS SQUIBB COMPANY-2024-125519

PATIENT
  Age: 40 Year
  Sex: Female
  Weight: 96 kg

DRUGS (279)
  1. ORENCIA [Suspect]
     Active Substance: ABATACEPT
     Indication: Rheumatoid arthritis
  2. ORENCIA [Suspect]
     Active Substance: ABATACEPT
  3. ORENCIA [Suspect]
     Active Substance: ABATACEPT
  4. ORENCIA [Suspect]
     Active Substance: ABATACEPT
  5. ORENCIA [Suspect]
     Active Substance: ABATACEPT
  6. ORENCIA [Suspect]
     Active Substance: ABATACEPT
     Indication: Rheumatoid arthritis
     Route: 058
  7. ORENCIA [Suspect]
     Active Substance: ABATACEPT
     Indication: Rheumatoid arthritis
     Route: 042
  8. CHLORHEXIDINE GLUCONATE\ISOPROPYL ALCOHOL [Concomitant]
     Active Substance: CHLORHEXIDINE GLUCONATE\ISOPROPYL ALCOHOL
     Indication: Product used for unknown indication
  9. ACETAMINOPHEN [Concomitant]
     Active Substance: ACETAMINOPHEN
     Indication: Rheumatoid arthritis
  10. ADALIMUMAB [Concomitant]
     Active Substance: ADALIMUMAB
     Indication: Rheumatoid arthritis
     Dosage: SOLUTION SUBCUTANEOUS
     Route: 041
  11. ADALIMUMAB [Concomitant]
     Active Substance: ADALIMUMAB
  12. ADALIMUMAB [Concomitant]
     Active Substance: ADALIMUMAB
     Route: 041
  13. ADALIMUMAB [Concomitant]
     Active Substance: ADALIMUMAB
     Dosage: SOLUTION SUBCUTANEOUS
     Route: 041
  14. ADALIMUMAB [Concomitant]
     Active Substance: ADALIMUMAB
  15. ADALIMUMAB [Concomitant]
     Active Substance: ADALIMUMAB
     Route: 058
  16. ADALIMUMAB [Concomitant]
     Active Substance: ADALIMUMAB
     Route: 058
  17. AIMOVIG [Concomitant]
     Active Substance: ERENUMAB-AOOE
     Indication: Product used for unknown indication
  18. AIMOVIG [Concomitant]
     Active Substance: ERENUMAB-AOOE
  19. ALENDRONATE SODIUM [Concomitant]
     Active Substance: ALENDRONATE SODIUM
     Indication: Rheumatoid arthritis
  20. ALENDRONATE SODIUM [Concomitant]
     Active Substance: ALENDRONATE SODIUM
     Route: 048
  21. ALENDRONATE SODIUM [Concomitant]
     Active Substance: ALENDRONATE SODIUM
  22. AZATHIOPRINE [Concomitant]
     Active Substance: AZATHIOPRINE
     Indication: Rheumatoid arthritis
  23. AZATHIOPRINE [Concomitant]
     Active Substance: AZATHIOPRINE
  24. CANDESARTAN [Concomitant]
     Active Substance: CANDESARTAN
     Indication: Product used for unknown indication
  25. CANDESARTAN [Concomitant]
     Active Substance: CANDESARTAN
     Route: 048
  26. CETIRIZINE [Concomitant]
     Active Substance: CETIRIZINE HYDROCHLORIDE
     Indication: Rheumatoid arthritis
  27. CETIRIZINE [Concomitant]
     Active Substance: CETIRIZINE HYDROCHLORIDE
  28. CETIRIZINE [Concomitant]
     Active Substance: CETIRIZINE HYDROCHLORIDE
  29. CETIRIZINE [Concomitant]
     Active Substance: CETIRIZINE HYDROCHLORIDE
  30. CETIRIZINE [Concomitant]
     Active Substance: CETIRIZINE HYDROCHLORIDE
  31. CETIRIZINE [Concomitant]
     Active Substance: CETIRIZINE HYDROCHLORIDE
     Route: 048
  32. COSENTYX [Concomitant]
     Active Substance: SECUKINUMAB
     Indication: Psoriatic arthropathy
  33. DICLOFENAC [Concomitant]
     Active Substance: DICLOFENAC
     Indication: Product used for unknown indication
  34. ERELZI [Concomitant]
     Active Substance: ETANERCEPT-SZZS
     Indication: Rheumatoid arthritis
  35. ERELZI [Concomitant]
     Active Substance: ETANERCEPT-SZZS
     Route: 058
  36. FLUMETHASONE PIVALATE [Concomitant]
     Active Substance: FLUMETHASONE PIVALATE
     Indication: Product used for unknown indication
  37. FLUMETHASONE PIVALATE [Concomitant]
     Active Substance: FLUMETHASONE PIVALATE
  38. FLUMETHASONE PIVALATE [Concomitant]
     Active Substance: FLUMETHASONE PIVALATE
     Route: 003
  39. FOLIC ACID [Concomitant]
     Active Substance: FOLIC ACID
     Indication: Rheumatoid arthritis
  40. FOLIC ACID [Concomitant]
     Active Substance: FOLIC ACID
  41. FOLIC ACID [Concomitant]
     Active Substance: FOLIC ACID
  42. FOLIC ACID [Concomitant]
     Active Substance: FOLIC ACID
  43. FOLIC ACID [Concomitant]
     Active Substance: FOLIC ACID
  44. FOLIC ACID [Concomitant]
     Active Substance: FOLIC ACID
  45. FOLIC ACID [Concomitant]
     Active Substance: FOLIC ACID
  46. FOLIC ACID [Concomitant]
     Active Substance: FOLIC ACID
  47. FOLIC ACID [Concomitant]
     Active Substance: FOLIC ACID
     Route: 058
  48. FOLIC ACID [Concomitant]
     Active Substance: FOLIC ACID
  49. FOLIC ACID [Concomitant]
     Active Substance: FOLIC ACID
     Route: 048
  50. FOLIC ACID [Concomitant]
     Active Substance: FOLIC ACID
     Route: 048
  51. FOLIC ACID [Concomitant]
     Active Substance: FOLIC ACID
     Route: 048
  52. FOLIC ACID [Concomitant]
     Active Substance: FOLIC ACID
     Route: 048
  53. FOLIC ACID [Concomitant]
     Active Substance: FOLIC ACID
  54. HAIR KERATIN AMINO ACIDS GOLD COMPLEX [Concomitant]
     Active Substance: HAIR KERATIN AMINO ACIDS GOLD COMPLEX
     Indication: Product used for unknown indication
  55. GOLD SODIUM THIOMALATE [Concomitant]
     Active Substance: GOLD SODIUM THIOMALATE
     Indication: Product used for unknown indication
  56. HYDROCORTISONE [Concomitant]
     Active Substance: HYDROCORTISONE
     Indication: Product used for unknown indication
  57. HYDROCORTISONE PROBUTATE [Concomitant]
     Active Substance: HYDROCORTISONE PROBUTATE
     Indication: Rheumatoid arthritis
  58. HYDROXYCHLOROQUINE [Concomitant]
     Active Substance: HYDROXYCHLOROQUINE
     Indication: Rheumatoid arthritis
  59. HYDROXYCHLOROQUINE [Concomitant]
     Active Substance: HYDROXYCHLOROQUINE
  60. HYDROXYCHLOROQUINE [Concomitant]
     Active Substance: HYDROXYCHLOROQUINE
     Route: 048
  61. HYDROXYCHLOROQUINE [Concomitant]
     Active Substance: HYDROXYCHLOROQUINE
     Route: 048
  62. HYDROXYCHLOROQUINE [Concomitant]
     Active Substance: HYDROXYCHLOROQUINE
     Route: 058
  63. HYDROXYCHLOROQUINE SULFATE [Concomitant]
     Active Substance: HYDROXYCHLOROQUINE SULFATE
     Indication: Rheumatoid arthritis
  64. INFLIXIMAB [Concomitant]
     Active Substance: INFLIXIMAB
     Indication: Rheumatoid arthritis
  65. INFLIXIMAB [Concomitant]
     Active Substance: INFLIXIMAB
  66. INFLIXIMAB [Concomitant]
     Active Substance: INFLIXIMAB
  67. INFLIXIMAB [Concomitant]
     Active Substance: INFLIXIMAB
  68. INFLIXIMAB [Concomitant]
     Active Substance: INFLIXIMAB
     Route: 042
  69. INFLIXIMAB [Concomitant]
     Active Substance: INFLIXIMAB
     Route: 042
  70. INFLIXIMAB [Concomitant]
     Active Substance: INFLIXIMAB
     Route: 042
  71. INFLIXIMAB [Concomitant]
     Active Substance: INFLIXIMAB
     Route: 058
  72. INFLIXIMAB [Concomitant]
     Active Substance: INFLIXIMAB
     Route: 042
  73. ISOPROPYL ALCOHOL [Concomitant]
     Active Substance: ISOPROPYL ALCOHOL
     Indication: Product used for unknown indication
  74. ISOPROPYL ALCOHOL [Concomitant]
     Active Substance: ISOPROPYL ALCOHOL
     Route: 061
  75. LAMICTAL [Concomitant]
     Active Substance: LAMOTRIGINE
     Indication: Product used for unknown indication
  76. LAMICTAL [Concomitant]
     Active Substance: LAMOTRIGINE
     Route: 048
  77. LAMICTAL [Concomitant]
     Active Substance: LAMOTRIGINE
     Route: 048
  78. LAMICTAL [Concomitant]
     Active Substance: LAMOTRIGINE
  79. MAGNESIUM CITRATE [Concomitant]
     Active Substance: MAGNESIUM CITRATE
     Indication: Product used for unknown indication
  80. MEGLUMINE [Concomitant]
     Active Substance: MEGLUMINE
     Indication: Product used for unknown indication
  81. MEGLUMINE [Concomitant]
     Active Substance: MEGLUMINE
  82. METHOTREXATE [Concomitant]
     Active Substance: METHOTREXATE
     Indication: Rheumatoid arthritis
  83. METHOTREXATE [Concomitant]
     Active Substance: METHOTREXATE
  84. METHOTREXATE [Concomitant]
     Active Substance: METHOTREXATE
  85. METHOTREXATE [Concomitant]
     Active Substance: METHOTREXATE
  86. METHOTREXATE [Concomitant]
     Active Substance: METHOTREXATE
  87. METHOTREXATE [Concomitant]
     Active Substance: METHOTREXATE
     Route: 048
  88. METHOTREXATE [Concomitant]
     Active Substance: METHOTREXATE
     Route: 048
  89. METHOTREXATE [Concomitant]
     Active Substance: METHOTREXATE
     Route: 058
  90. METHOTREXATE [Concomitant]
     Active Substance: METHOTREXATE
     Route: 048
  91. METHYLPREDNISOLONE [Concomitant]
     Active Substance: METHYLPREDNISOLONE
     Indication: Product used for unknown indication
  92. METHYLPREDNISOLONE [Concomitant]
     Active Substance: METHYLPREDNISOLONE
  93. METHYLPREDNISOLONE SODIUM SUCCINATE [Concomitant]
     Active Substance: METHYLPREDNISOLONE SODIUM SUCCINATE
     Indication: Product used for unknown indication
  94. MINOCYCLINE [Concomitant]
     Active Substance: MINOCYCLINE HYDROCHLORIDE
     Indication: Product used for unknown indication
  95. MINOCYCLINE HYDROCHLORIDE [Concomitant]
     Active Substance: MINOCYCLINE HYDROCHLORIDE
     Indication: Rheumatoid arthritis
  96. MYOCHRYSINE [Concomitant]
     Active Substance: GOLD SODIUM THIOMALATE
     Indication: Rheumatoid arthritis
  97. MYOCHRYSINE [Concomitant]
     Active Substance: GOLD SODIUM THIOMALATE
     Route: 030
  98. MYRBETRIQ [Concomitant]
     Active Substance: MIRABEGRON
     Indication: Product used for unknown indication
  99. MYRBETRIQ [Concomitant]
     Active Substance: MIRABEGRON
  100. MYRBETRIQ [Concomitant]
     Active Substance: MIRABEGRON
  101. MYRBETRIQ [Concomitant]
     Active Substance: MIRABEGRON
  102. NAPROXEN [Concomitant]
     Active Substance: NAPROXEN
     Indication: Product used for unknown indication
  103. NAPROXEN [Concomitant]
     Active Substance: NAPROXEN
  104. NAPROXEN [Concomitant]
     Active Substance: NAPROXEN
  105. NAPROXEN SODIUM [Concomitant]
     Active Substance: NAPROXEN SODIUM
     Indication: Rheumatoid arthritis
  106. NAPROXEN SODIUM [Concomitant]
     Active Substance: NAPROXEN SODIUM
  107. NAPROXEN SODIUM [Concomitant]
     Active Substance: NAPROXEN SODIUM
  108. NICOTINAMIDE [Concomitant]
     Active Substance: NIACINAMIDE
     Indication: Product used for unknown indication
  109. NICOTINAMIDE [Concomitant]
     Active Substance: NIACINAMIDE
  110. NUCALA [Concomitant]
     Active Substance: MEPOLIZUMAB
     Indication: Product used for unknown indication
  111. OXYCODONE [Concomitant]
     Active Substance: OXYCODONE
     Indication: Product used for unknown indication
  112. OXYCODONE TEREPHTHALATE [Concomitant]
     Active Substance: OXYCODONE TEREPHTHALATE
     Indication: Product used for unknown indication
  113. PERIOGARD [Concomitant]
     Active Substance: CHLORHEXIDINE GLUCONATE
     Indication: Product used for unknown indication
  114. PHTHALYLSULFATHIAZOLE [Concomitant]
     Active Substance: PHTHALYLSULFATHIAZOLE
     Indication: Rheumatoid arthritis
  115. PHTHALYLSULFATHIAZOLE [Concomitant]
     Active Substance: PHTHALYLSULFATHIAZOLE
  116. PHTHALYLSULFATHIAZOLE [Concomitant]
     Active Substance: PHTHALYLSULFATHIAZOLE
  117. PHTHALYLSULFATHIAZOLE [Concomitant]
     Active Substance: PHTHALYLSULFATHIAZOLE
  118. PHTHALYLSULFATHIAZOLE [Concomitant]
     Active Substance: PHTHALYLSULFATHIAZOLE
  119. PHTHALYLSULFATHIAZOLE [Concomitant]
     Active Substance: PHTHALYLSULFATHIAZOLE
     Route: 048
  120. PHTHALYLSULFATHIAZOLE [Concomitant]
     Active Substance: PHTHALYLSULFATHIAZOLE
     Route: 058
  121. PHTHALYLSULFATHIAZOLE [Concomitant]
     Active Substance: PHTHALYLSULFATHIAZOLE
     Route: 048
  122. PHTHALYLSULFATHIAZOLE [Concomitant]
     Active Substance: PHTHALYLSULFATHIAZOLE
     Route: 048
  123. PHTHALYLSULFATHIAZOLE [Concomitant]
     Active Substance: PHTHALYLSULFATHIAZOLE
     Route: 048
  124. PHTHALYLSULFATHIAZOLE [Concomitant]
     Active Substance: PHTHALYLSULFATHIAZOLE
  125. HYDROXYCHLOROQUINE DIPHOSPHATE [Concomitant]
     Active Substance: HYDROXYCHLOROQUINE DIPHOSPHATE
     Indication: Rheumatoid arthritis
  126. PREDNISONE [Concomitant]
     Active Substance: PREDNISONE
     Indication: Rheumatoid arthritis
  127. PREDNISONE [Concomitant]
     Active Substance: PREDNISONE
  128. PREDNISONE [Concomitant]
     Active Substance: PREDNISONE
  129. PREDNISONE [Concomitant]
     Active Substance: PREDNISONE
  130. PREDNISONE [Concomitant]
     Active Substance: PREDNISONE
  131. PREDNISONE [Concomitant]
     Active Substance: PREDNISONE
  132. PREDNISONE [Concomitant]
     Active Substance: PREDNISONE
  133. PREDNISONE [Concomitant]
     Active Substance: PREDNISONE
  134. PSEUDOEPHEDRINE [Concomitant]
     Active Substance: PSEUDOEPHEDRINE
     Indication: Rheumatoid arthritis
  135. PSEUDOEPHEDRINE [Concomitant]
     Active Substance: PSEUDOEPHEDRINE
  136. PSEUDOEPHEDRINE [Concomitant]
     Active Substance: PSEUDOEPHEDRINE
  137. PSEUDOEPHEDRINE [Concomitant]
     Active Substance: PSEUDOEPHEDRINE
  138. RAMIPRIL [Concomitant]
     Active Substance: RAMIPRIL
     Indication: Rheumatoid arthritis
  139. RAMIPRIL [Concomitant]
     Active Substance: RAMIPRIL
     Route: 042
  140. RAMIPRIL [Concomitant]
     Active Substance: RAMIPRIL
     Route: 016
  141. RANITIDINE [Concomitant]
     Active Substance: RANITIDINE
     Indication: Product used for unknown indication
  142. CETIRIZINE HYDROCHLORIDE\PSEUDOEPHEDRINE HYDROCHLORIDE [Concomitant]
     Active Substance: CETIRIZINE HYDROCHLORIDE\PSEUDOEPHEDRINE HYDROCHLORIDE
     Indication: Rheumatoid arthritis
     Dosage: TABLET (EXTENDED- RELEASE)
  143. CETIRIZINE HYDROCHLORIDE\PSEUDOEPHEDRINE HYDROCHLORIDE [Concomitant]
     Active Substance: CETIRIZINE HYDROCHLORIDE\PSEUDOEPHEDRINE HYDROCHLORIDE
  144. CETIRIZINE HYDROCHLORIDE\PSEUDOEPHEDRINE HYDROCHLORIDE [Concomitant]
     Active Substance: CETIRIZINE HYDROCHLORIDE\PSEUDOEPHEDRINE HYDROCHLORIDE
  145. CETIRIZINE HYDROCHLORIDE\PSEUDOEPHEDRINE HYDROCHLORIDE [Concomitant]
     Active Substance: CETIRIZINE HYDROCHLORIDE\PSEUDOEPHEDRINE HYDROCHLORIDE
     Route: 042
  146. REMICADE [Concomitant]
     Active Substance: INFLIXIMAB
     Indication: Rheumatoid arthritis
     Dosage: POWDER FOR SOLUTION INTRAVENOUS
  147. REMICADE [Concomitant]
     Active Substance: INFLIXIMAB
     Route: 042
  148. REMICADE [Concomitant]
     Active Substance: INFLIXIMAB
     Route: 058
  149. REMICADE [Concomitant]
     Active Substance: INFLIXIMAB
     Route: 042
  150. RIBOFLAVIN [Concomitant]
     Active Substance: RIBOFLAVIN
     Indication: Product used for unknown indication
  151. RIBOFLAVIN [Concomitant]
     Active Substance: RIBOFLAVIN
  152. RITUXIMAB [Concomitant]
     Active Substance: RITUXIMAB
     Indication: Rheumatoid arthritis
  153. RITUXIMAB [Concomitant]
     Active Substance: RITUXIMAB
  154. RITUXIMAB [Concomitant]
     Active Substance: RITUXIMAB
  155. RITUXIMAB [Concomitant]
     Active Substance: RITUXIMAB
  156. RITUXIMAB [Concomitant]
     Active Substance: RITUXIMAB
  157. RITUXIMAB [Concomitant]
     Active Substance: RITUXIMAB
     Route: 058
  158. RITUXIMAB [Concomitant]
     Active Substance: RITUXIMAB
     Route: 042
  159. RITUXIMAB [Concomitant]
     Active Substance: RITUXIMAB
  160. RITUXIMAB [Concomitant]
     Active Substance: RITUXIMAB
     Route: 042
  161. RITUXIMAB [Concomitant]
     Active Substance: RITUXIMAB
     Route: 042
  162. RITUXIMAB [Concomitant]
     Active Substance: RITUXIMAB
     Route: 043
  163. SULFASALAZINE [Concomitant]
     Active Substance: SULFASALAZINE
     Indication: Rheumatoid arthritis
  164. SIMPONI [Concomitant]
     Active Substance: GOLIMUMAB
     Indication: Rheumatoid arthritis
  165. SIMPONI [Concomitant]
     Active Substance: GOLIMUMAB
     Indication: Prostatic specific antigen
  166. SIMPONI [Concomitant]
     Active Substance: GOLIMUMAB
  167. SIMPONI [Concomitant]
     Active Substance: GOLIMUMAB
  168. SIMPONI [Concomitant]
     Active Substance: GOLIMUMAB
  169. SIMPONI [Concomitant]
     Active Substance: GOLIMUMAB
  170. SIMPONI [Concomitant]
     Active Substance: GOLIMUMAB
     Route: 058
  171. SIMPONI [Concomitant]
     Active Substance: GOLIMUMAB
     Route: 058
  172. SIRUKUMAB [Concomitant]
     Active Substance: SIRUKUMAB
     Indication: Product used for unknown indication
  173. GOLD SODIUM THIOMALATE [Concomitant]
     Active Substance: GOLD SODIUM THIOMALATE
     Indication: Product used for unknown indication
  174. GOLD SODIUM THIOMALATE [Concomitant]
     Active Substance: GOLD SODIUM THIOMALATE
     Route: 048
  175. STELARA [Concomitant]
     Active Substance: USTEKINUMAB
     Indication: Product used for unknown indication
  176. STELARA [Concomitant]
     Active Substance: USTEKINUMAB
  177. STELARA [Concomitant]
     Active Substance: USTEKINUMAB
  178. STELARA [Concomitant]
     Active Substance: USTEKINUMAB
  179. TRAMADOL HYDROCHLORIDE [Concomitant]
     Active Substance: TRAMADOL HYDROCHLORIDE
     Indication: Product used for unknown indication
  180. ACETAMINOPHEN AND CODEINE [Concomitant]
     Active Substance: ACETAMINOPHEN\CODEINE PHOSPHATE
     Indication: Product used for unknown indication
  181. ACTEMRA [Concomitant]
     Active Substance: TOCILIZUMAB
     Indication: Rheumatoid arthritis
     Route: 041
  182. ACTEMRA [Concomitant]
     Active Substance: TOCILIZUMAB
     Route: 041
  183. ACTEMRA [Concomitant]
     Active Substance: TOCILIZUMAB
     Route: 041
  184. ACTEMRA [Concomitant]
     Active Substance: TOCILIZUMAB
     Route: 041
  185. ACTEMRA [Concomitant]
     Active Substance: TOCILIZUMAB
     Dosage: 8.0 MG/KG
     Route: 041
  186. ACTEMRA [Concomitant]
     Active Substance: TOCILIZUMAB
     Route: 041
  187. ACTEMRA [Concomitant]
     Active Substance: TOCILIZUMAB
     Route: 041
  188. ACTEMRA [Concomitant]
     Active Substance: TOCILIZUMAB
     Route: 041
  189. ACTEMRA [Concomitant]
     Active Substance: TOCILIZUMAB
     Route: 041
  190. ACTEMRA [Concomitant]
     Active Substance: TOCILIZUMAB
  191. ACTEMRA [Concomitant]
     Active Substance: TOCILIZUMAB
     Route: 041
  192. ACTEMRA [Concomitant]
     Active Substance: TOCILIZUMAB
     Route: 041
  193. DICLOFENAC SODIUM [Concomitant]
     Active Substance: DICLOFENAC SODIUM
     Indication: Product used for unknown indication
  194. DICLOFENAC SODIUM [Concomitant]
     Active Substance: DICLOFENAC SODIUM
  195. LEFLUNOMIDE [Concomitant]
     Active Substance: LEFLUNOMIDE
     Indication: Rheumatoid arthritis
  196. LEFLUNOMIDE [Concomitant]
     Active Substance: LEFLUNOMIDE
  197. LEFLUNOMIDE [Concomitant]
     Active Substance: LEFLUNOMIDE
  198. LEFLUNOMIDE [Concomitant]
     Active Substance: LEFLUNOMIDE
  199. LEFLUNOMIDE [Concomitant]
     Active Substance: LEFLUNOMIDE
  200. LEFLUNOMIDE [Concomitant]
     Active Substance: LEFLUNOMIDE
  201. ARAVA [Concomitant]
     Active Substance: LEFLUNOMIDE
     Indication: Rheumatoid arthritis
     Route: 048
  202. ARAVA [Concomitant]
     Active Substance: LEFLUNOMIDE
  203. ATOMOXETINE [Concomitant]
     Active Substance: ATOMOXETINE HYDROCHLORIDE
     Indication: Migraine
  204. BERINERT [Concomitant]
     Active Substance: HUMAN C1-ESTERASE INHIBITOR
     Indication: Product used for unknown indication
  205. BOTULINUM TOXIN TYPE A [Concomitant]
     Active Substance: BOTULINUM TOXIN TYPE A
     Indication: Product used for unknown indication
     Dosage: POWDER FOR SOLUTION
  206. BUTRANS [Concomitant]
     Active Substance: BUPRENORPHINE
     Indication: Product used for unknown indication
  207. BUTRANS [Concomitant]
     Active Substance: BUPRENORPHINE
     Dosage: PATCH
  208. CALCIUM [Concomitant]
     Active Substance: CALCIUM
     Indication: Product used for unknown indication
  209. CALCIUM ASCORBATE [Concomitant]
     Active Substance: CALCIUM ASCORBATE
     Indication: Product used for unknown indication
  210. CALCIUM CITRATE [Concomitant]
     Active Substance: CALCIUM CITRATE
     Indication: Product used for unknown indication
  211. CALCIUM GLUBIONATE [Concomitant]
     Active Substance: CALCIUM GLUBIONATE
     Indication: Product used for unknown indication
  212. CELEBREX [Concomitant]
     Active Substance: CELECOXIB
     Indication: Product used for unknown indication
  213. CELEBREX [Concomitant]
     Active Substance: CELECOXIB
  214. CHOLECALCIFEROL [Concomitant]
     Active Substance: CHOLECALCIFEROL
     Indication: Product used for unknown indication
  215. CIMZIA [Concomitant]
     Active Substance: CERTOLIZUMAB PEGOL
     Indication: Rheumatoid arthritis
  216. CIMZIA [Concomitant]
     Active Substance: CERTOLIZUMAB PEGOL
  217. CIMZIA [Concomitant]
     Active Substance: CERTOLIZUMAB PEGOL
  218. CORTISONE ACETATE [Concomitant]
     Active Substance: CORTISONE ACETATE
     Indication: Rheumatoid arthritis
  219. CORTISONE ACETATE [Concomitant]
     Active Substance: CORTISONE ACETATE
  220. DESOXIMETASONE [Concomitant]
     Active Substance: DESOXIMETASONE
     Indication: Rheumatoid arthritis
  221. DESOXIMETASONE [Concomitant]
     Active Substance: DESOXIMETASONE
  222. DESOXIMETASONE [Concomitant]
     Active Substance: DESOXIMETASONE
  223. DICLOFENAC SODIUM [Concomitant]
     Active Substance: DICLOFENAC SODIUM
     Indication: Product used for unknown indication
     Route: 058
  224. DICLOFENAC SODIUM [Concomitant]
     Active Substance: DICLOFENAC SODIUM
  225. DOMPERIDONE MALEATE [Concomitant]
     Active Substance: DOMPERIDONE MALEATE
     Indication: Product used for unknown indication
  226. ENBREL [Concomitant]
     Active Substance: ETANERCEPT
     Indication: Rheumatoid arthritis
     Route: 058
  227. ENBREL [Concomitant]
     Active Substance: ETANERCEPT
     Route: 058
  228. ENBREL [Concomitant]
     Active Substance: ETANERCEPT
     Route: 058
  229. ENBREL [Concomitant]
     Active Substance: ETANERCEPT
     Route: 058
  230. ENBREL [Concomitant]
     Active Substance: ETANERCEPT
     Route: 058
  231. ERGOCALCIFEROL [Concomitant]
     Active Substance: ERGOCALCIFEROL
     Indication: Product used for unknown indication
  232. FLUMETHASONE [Concomitant]
     Active Substance: FLUMETHASONE
     Indication: Product used for unknown indication
  233. FOSAMAX [Concomitant]
     Active Substance: ALENDRONATE SODIUM
     Indication: Rheumatoid arthritis
  234. FOSAMAX [Concomitant]
     Active Substance: ALENDRONATE SODIUM
  235. FOSAMAX [Concomitant]
     Active Substance: ALENDRONATE SODIUM
     Route: 016
  236. KEVZARA [Concomitant]
     Active Substance: SARILUMAB
     Indication: Product used for unknown indication
  237. LAMICTAL [Concomitant]
     Active Substance: LAMOTRIGINE
     Indication: Product used for unknown indication
  238. LAMICTAL [Concomitant]
     Active Substance: LAMOTRIGINE
  239. LAMICTAL [Concomitant]
     Active Substance: LAMOTRIGINE
  240. LEFLUNOMIDE [Concomitant]
     Active Substance: LEFLUNOMIDE
     Indication: Rheumatoid arthritis
  241. LEFLUNOMIDE [Concomitant]
     Active Substance: LEFLUNOMIDE
  242. LEFLUNOMIDE [Concomitant]
     Active Substance: LEFLUNOMIDE
  243. LEFLUNOMIDE [Concomitant]
     Active Substance: LEFLUNOMIDE
  244. LEFLUNOMIDE [Concomitant]
     Active Substance: LEFLUNOMIDE
     Route: 048
  245. LEFLUNOMIDE [Concomitant]
     Active Substance: LEFLUNOMIDE
     Route: 048
  246. VITAMIN C [Concomitant]
     Active Substance: ASCORBIC ACID
     Indication: Product used for unknown indication
  247. GOLD [Concomitant]
     Active Substance: GOLD
     Indication: Product used for unknown indication
  248. ALENDRONATE SODIUM\CHOLECALCIFEROL [Concomitant]
     Active Substance: ALENDRONATE SODIUM\CHOLECALCIFEROL
     Indication: Rheumatoid arthritis
  249. ALENDRONIC ACID [Concomitant]
     Active Substance: ALENDRONIC ACID
     Indication: Rheumatoid arthritis
     Route: 048
  250. ALENDRONIC ACID [Concomitant]
     Active Substance: ALENDRONIC ACID
  251. PREDNISONE [Concomitant]
     Active Substance: PREDNISONE
     Indication: Rheumatoid arthritis
     Route: 048
  252. PREDNISONE [Concomitant]
     Active Substance: PREDNISONE
  253. PREDNISONE [Concomitant]
     Active Substance: PREDNISONE
     Route: 048
  254. PREDNISONE [Concomitant]
     Active Substance: PREDNISONE
  255. PREDNISONE [Concomitant]
     Active Substance: PREDNISONE
     Route: 048
  256. CERTOLIZUMAB PEGOL [Concomitant]
     Active Substance: CERTOLIZUMAB PEGOL
     Indication: Product used for unknown indication
     Route: 058
  257. CERTOLIZUMAB PEGOL [Concomitant]
     Active Substance: CERTOLIZUMAB PEGOL
     Route: 016
  258. ERENUMAB [Concomitant]
     Active Substance: ERENUMAB
     Indication: Migraine
  259. GOLIMUMAB [Concomitant]
     Active Substance: GOLIMUMAB
     Indication: Rheumatoid arthritis
  260. GOLIMUMAB [Concomitant]
     Active Substance: GOLIMUMAB
     Route: 058
  261. HUMIRA [Concomitant]
     Active Substance: ADALIMUMAB
     Indication: Rheumatoid arthritis
     Route: 058
  262. HUMIRA [Concomitant]
     Active Substance: ADALIMUMAB
     Route: 057
  263. HUMIRA [Concomitant]
     Active Substance: ADALIMUMAB
     Route: 058
  264. SULFAMETHOXAZOLE\TRIMETHOPRIM [Concomitant]
     Active Substance: SULFAMETHOXAZOLE\TRIMETHOPRIM
     Indication: Product used for unknown indication
  265. SULFASALAZINE [Concomitant]
     Active Substance: SULFASALAZINE
     Indication: Rheumatoid arthritis
  266. SULFASALAZINE [Concomitant]
     Active Substance: SULFASALAZINE
     Route: 048
  267. THIAMINE HYDROCHLORIDE [Concomitant]
     Active Substance: THIAMINE HYDROCHLORIDE
     Indication: Product used for unknown indication
  268. TOCILIZUMAB [Concomitant]
     Active Substance: TOCILIZUMAB
     Indication: Rheumatoid arthritis
     Route: 042
  269. TOCILIZUMAB [Concomitant]
     Active Substance: TOCILIZUMAB
     Route: 058
  270. TOCILIZUMAB [Concomitant]
     Active Substance: TOCILIZUMAB
     Route: 042
  271. TOFACITINIB CITRATE [Concomitant]
     Active Substance: TOFACITINIB CITRATE
     Indication: Rheumatoid arthritis
  272. TOPIRAMATE [Concomitant]
     Active Substance: TOPIRAMATE
     Indication: Rheumatoid arthritis
  273. USTEKINUMAB [Concomitant]
     Active Substance: USTEKINUMAB
     Indication: Product used for unknown indication
  274. USTEKINUMAB [Concomitant]
     Active Substance: USTEKINUMAB
     Route: 058
  275. VITAMIN D3 [Concomitant]
     Active Substance: CHOLECALCIFEROL
     Indication: Product used for unknown indication
  276. XELJANZ [Concomitant]
     Active Substance: TOFACITINIB CITRATE
     Indication: Product used for unknown indication
     Route: 048
  277. XELJANZ [Concomitant]
     Active Substance: TOFACITINIB CITRATE
     Route: 048
  278. XELJANZ [Concomitant]
     Active Substance: TOFACITINIB CITRATE
     Route: 048
  279. ZINC [Concomitant]
     Active Substance: ZINC
     Indication: Rheumatoid arthritis

REACTIONS (1)
  - Death [Fatal]
